FAERS Safety Report 10039965 (Version 1)
Quarter: 2014Q1

REPORT INFORMATION
  Report Type: Spontaneous
  Country: US (occurrence: US)
  Receive Date: 20140326
  Receipt Date: 20140326
  Transmission Date: 20141002
  Serious: Yes (Hospitalization)
  Sender: FDA-Public Use
  Company Number: US-JNJFOC-20140310700

PATIENT
  Sex: Male

DRUGS (1)
  1. TOPAMAX [Suspect]
     Indication: MENTAL DISORDER
     Route: 048
     Dates: end: 2013

REACTIONS (4)
  - Weight decreased [Recovered/Resolved]
  - Psychotic disorder [Unknown]
  - Mental disorder [Unknown]
  - Off label use [Unknown]
